FAERS Safety Report 17119711 (Version 1)
Quarter: 2019Q4

REPORT INFORMATION
  Report Type: Report from Study
  Country: DE (occurrence: DE)
  Receive Date: 20191206
  Receipt Date: 20191206
  Transmission Date: 20200122
  Serious: Yes (Hospitalization)
  Sender: FDA-Public Use
  Company Number: DE-BIOGEN-2019BI00813378

PATIENT
  Sex: Female

DRUGS (6)
  1. AVONEX PEN [Suspect]
     Active Substance: INTERFERON BETA-1A
     Indication: MULTIPLE SCLEROSIS
     Route: 030
     Dates: start: 20090326
  2. AVONEX PEN [Suspect]
     Active Substance: INTERFERON BETA-1A
  3. CORTISONE [Concomitant]
     Active Substance: CORTISONE
     Route: 065
     Dates: start: 201911, end: 201911
  4. AVONEX PEN [Suspect]
     Active Substance: INTERFERON BETA-1A
  5. CORTISONE [Concomitant]
     Active Substance: CORTISONE
     Indication: PRODUCT USED FOR UNKNOWN INDICATION
     Route: 065
     Dates: start: 2018, end: 2018
  6. AVONEX PEN [Suspect]
     Active Substance: INTERFERON BETA-1A

REACTIONS (3)
  - Blood pressure increased [Not Recovered/Not Resolved]
  - Therapeutic product effect decreased [Recovered/Resolved]
  - General physical health deterioration [Not Recovered/Not Resolved]
